FAERS Safety Report 24259900 (Version 3)
Quarter: 2024Q4

REPORT INFORMATION
  Report Type: Spontaneous
  Country: DE (occurrence: DE)
  Receive Date: 20240828
  Receipt Date: 20241009
  Transmission Date: 20250115
  Serious: Yes (Other)
  Sender: NOVARTIS
  Company Number: DE-002147023-NVSC2024DE131556

PATIENT
  Sex: Female
  Weight: 78.8 kg

DRUGS (1)
  1. KESIMPTA [Suspect]
     Active Substance: OFATUMUMAB
     Indication: Multiple sclerosis
     Dosage: 20 MG, QMO
     Route: 065
     Dates: start: 202301

REACTIONS (12)
  - Coronavirus infection [Recovering/Resolving]
  - Pyrexia [Recovering/Resolving]
  - Nasal congestion [Recovered/Resolved]
  - Cough [Recovering/Resolving]
  - Headache [Recovered/Resolved]
  - Illness [Recovering/Resolving]
  - Dyspnoea [Recovering/Resolving]
  - Influenza like illness [Recovered/Resolved]
  - Fatigue [Recovering/Resolving]
  - Oropharyngeal pain [Recovering/Resolving]
  - Myalgia [Recovering/Resolving]
  - Therapeutic product effect variable [Recovered/Resolved]

NARRATIVE: CASE EVENT DATE: 20230101
